FAERS Safety Report 24424524 (Version 1)
Quarter: 2024Q4

REPORT INFORMATION
  Report Type: Spontaneous
  Country: US (occurrence: US)
  Receive Date: 20241010
  Receipt Date: 20241010
  Transmission Date: 20250114
  Serious: No
  Sender: TEIKOKU
  Company Number: US-TPU-TPU-2024-00512

PATIENT
  Sex: Female

DRUGS (1)
  1. LIDOCAINE PATCH [Suspect]
     Active Substance: LIDOCAINE
     Indication: Muscle strain

REACTIONS (1)
  - Muscle strain [Unknown]

NARRATIVE: CASE EVENT DATE: 20240901
